FAERS Safety Report 18054279 (Version 1)
Quarter: 2020Q3

REPORT INFORMATION
  Report Type: Spontaneous
  Country: US (occurrence: US)
  Receive Date: 20200722
  Receipt Date: 20200722
  Transmission Date: 20201103
  Serious: No
  Sender: FDA-Public Use
  Company Number: None

PATIENT
  Age: 67 Year
  Sex: Female
  Weight: 59.85 kg

DRUGS (5)
  1. HYDROXYUREA. [Concomitant]
     Active Substance: HYDROXYUREA
  2. BABY ASPIRIN [Concomitant]
     Active Substance: ASPIRIN
  3. DOXYCYCLINE MONO 100 MG CAP PAR [Suspect]
     Active Substance: DOXYCYCLINE
     Indication: DERMAL CYST
     Dosage: ?          QUANTITY:14 CAPSULE(S);?
     Route: 048
     Dates: start: 20200703, end: 20200710
  4. VITAMIN D [Concomitant]
     Active Substance: VITAMIN D NOS
  5. CALCIUM [Concomitant]
     Active Substance: CALCIUM

REACTIONS (5)
  - Abdominal discomfort [None]
  - Photosensitivity reaction [None]
  - Dyspepsia [None]
  - Skin burning sensation [None]
  - Burning sensation [None]

NARRATIVE: CASE EVENT DATE: 20200708
